FAERS Safety Report 9385865 (Version 7)
Quarter: 2014Q4

REPORT INFORMATION
  Report Type: Spontaneous
  Country: US (occurrence: US)
  Receive Date: 20130705
  Receipt Date: 20141205
  Transmission Date: 20150529
  Serious: Yes (Other)
  Sender: FDA-Public Use
  Company Number: US-009507513-1307USA001802

PATIENT
  Sex: Male
  Weight: 85.26 kg

DRUGS (7)
  1. FINASTERIDE. [Suspect]
     Active Substance: FINASTERIDE
     Indication: PROPHYLAXIS
     Dosage: 5 MG, QD
     Route: 048
     Dates: start: 2001, end: 2011
  2. PROSCAR [Suspect]
     Active Substance: FINASTERIDE
     Indication: PROPHYLAXIS
     Dosage: 5 MG,1/4 TAB DAILY
     Route: 048
     Dates: start: 2001, end: 2011
  3. FINASTERIDE. [Suspect]
     Active Substance: FINASTERIDE
     Indication: ANDROGENETIC ALOPECIA
     Dosage: 1 MG, UNK
     Route: 048
     Dates: start: 1999, end: 2000
  4. PROPECIA [Suspect]
     Active Substance: FINASTERIDE
     Indication: ANDROGENETIC ALOPECIA
     Dosage: 1 MG, UNK
     Route: 048
     Dates: start: 1997, end: 201208
  5. PROSCAR [Suspect]
     Active Substance: FINASTERIDE
     Indication: ANDROGENETIC ALOPECIA
     Dosage: 5 MG, QD
     Route: 048
     Dates: start: 2001, end: 2011
  6. PROPECIA [Suspect]
     Active Substance: FINASTERIDE
     Indication: PROPHYLAXIS
  7. FINASTERIDE. [Suspect]
     Active Substance: FINASTERIDE
     Dosage: 5 MG, 1/4 TAB DAILY
     Route: 048
     Dates: start: 2001, end: 2011

REACTIONS (44)
  - Anxiety [Unknown]
  - Medical device removal [Unknown]
  - Post-traumatic neck syndrome [Unknown]
  - Headache [Unknown]
  - Temporomandibular joint syndrome [Not Recovered/Not Resolved]
  - Semen volume decreased [Not Recovered/Not Resolved]
  - Ulna fracture [Unknown]
  - Wrong technique in drug usage process [Unknown]
  - Flushing [Unknown]
  - Diverticulum [Unknown]
  - Factitious disorder [Unknown]
  - Sexual dysfunction [Not Recovered/Not Resolved]
  - Ejaculation failure [Unknown]
  - Loss of libido [Not Recovered/Not Resolved]
  - Cardiac failure [Unknown]
  - Viral infection [Unknown]
  - Laceration [Unknown]
  - Personality disorder [Unknown]
  - Endocrine disorder [Unknown]
  - Feminisation acquired [Recovering/Resolving]
  - Hypertension [Unknown]
  - Neck pain [Unknown]
  - Breast enlargement [Unknown]
  - Erectile dysfunction [Not Recovered/Not Resolved]
  - Weight increased [Unknown]
  - Muscle atrophy [Unknown]
  - Lipoma excision [Unknown]
  - Varicose vein [Unknown]
  - Stress [Unknown]
  - Open reduction of fracture [Unknown]
  - Joint injury [Unknown]
  - Varicose vein [Unknown]
  - Depression [Unknown]
  - Rib fracture [Unknown]
  - Viral infection [Unknown]
  - Laceration [Unknown]
  - Extrasystoles [Unknown]
  - Dependent personality disorder [Unknown]
  - Chest injury [Unknown]
  - Drug administration error [Unknown]
  - Joint injury [Unknown]
  - Hypertensive heart disease [Unknown]
  - Hypochondriasis [Unknown]
  - Musculoskeletal chest pain [Not Recovered/Not Resolved]

NARRATIVE: CASE EVENT DATE: 1999
